FAERS Safety Report 9153818 (Version 2)
Quarter: 2013Q3

REPORT INFORMATION
  Report Type: Spontaneous
  Country: US (occurrence: US)
  Receive Date: 20130311
  Receipt Date: 20130805
  Transmission Date: 20140515
  Serious: Yes (Hospitalization, Other)
  Sender: FDA-Public Use
  Company Number: US-009507513-1303USA003933

PATIENT
  Sex: Female
  Weight: 54.88 kg

DRUGS (4)
  1. FOSAMAX [Suspect]
     Indication: OSTEOPENIA
     Dosage: 70 MG, QW
     Route: 048
     Dates: end: 20080501
  2. ALENDRONATE SODIUM [Suspect]
     Indication: OSTEOPENIA
     Dosage: 70 MG, UNK
     Route: 048
     Dates: start: 20080501, end: 20100202
  3. CALCIUM (UNSPECIFIED) [Concomitant]
     Indication: OSTEOPENIA
     Dosage: 600 MG, UNK
     Dates: start: 2000
  4. VITAMIN D (UNSPECIFIED) [Concomitant]
     Indication: OSTEOPENIA
     Dosage: 1000 IU, UNK
     Dates: start: 2000

REACTIONS (23)
  - Femur fracture [Unknown]
  - Open reduction of fracture [Unknown]
  - Anaemia postoperative [Unknown]
  - Femur fracture [Recovered/Resolved]
  - Femur fracture [Recovered/Resolved]
  - Open reduction of fracture [Unknown]
  - Impaired healing [Unknown]
  - Low turnover osteopathy [Unknown]
  - Osteoporosis [Unknown]
  - Hypothyroidism [Unknown]
  - Arthritis [Unknown]
  - Depression [Unknown]
  - Pain [Unknown]
  - Anxiety [Unknown]
  - Sciatica [Unknown]
  - Anxiety [Unknown]
  - Medical device removal [Unknown]
  - Cataract operation [Unknown]
  - Intraocular lens implant [Unknown]
  - Cataract operation [Unknown]
  - Intraocular lens implant [Unknown]
  - Osteoarthritis [Unknown]
  - Gastrooesophageal reflux disease [Unknown]
